FAERS Safety Report 6104471-4 (Version None)
Quarter: 2009Q1

REPORT INFORMATION
  Report Type: 
  Country: None (occurrence: None)
  Receive Date: 20090305
  Receipt Date: 20090224
  Transmission Date: 20090719
  Serious: Yes (Death, Life-Threatening)
  Sender: FDA-Public Use
  Company Number: AT-SANOFI-SYNTHELABO-A01200901968

PATIENT
  Sex: Male

DRUGS (2)
  1. AVASTIN [Suspect]
     Route: 042
     Dates: start: 20081216, end: 20081216
  2. ELOXATIN [Suspect]
     Indication: COLON CANCER METASTATIC
     Route: 042
     Dates: start: 20081216, end: 20081216

REACTIONS (3)
  - ANAEMIA [None]
  - MYOCARDIAL INFARCTION [None]
  - RECTAL HAEMORRHAGE [None]
